FAERS Safety Report 10086542 (Version 1)
Quarter: 2014Q2

REPORT INFORMATION
  Report Type: Spontaneous
  Country: DK (occurrence: FR)
  Receive Date: 20140418
  Receipt Date: 20140418
  Transmission Date: 20141212
  Serious: Yes (Hospitalization)
  Sender: FDA-Public Use
  Company Number: FR-FRI-1000066608

PATIENT
  Age: 86 Year
  Sex: Female

DRUGS (7)
  1. ESCITALOPRAM [Suspect]
     Route: 048
  2. PREVISCAN [Suspect]
     Route: 048
  3. SECTRAL [Concomitant]
  4. ESOMEPRAZOLE [Concomitant]
  5. MELAXOSE [Concomitant]
  6. KETUM [Concomitant]
  7. LEXOMIL [Concomitant]

REACTIONS (1)
  - Cerebral haematoma [Unknown]
